FAERS Safety Report 16317916 (Version 4)
Quarter: 2019Q3

REPORT INFORMATION
  Report Type: Report from Study
  Country: BR (occurrence: BR)
  Receive Date: 20190516
  Receipt Date: 20190705
  Transmission Date: 20191004
  Serious: Yes (Other)
  Sender: FDA-Public Use
  Company Number: BR-ROCHE-2317462

PATIENT
  Age: 53 Year
  Sex: Male

DRUGS (2)
  1. XOLAIR [Suspect]
     Active Substance: OMALIZUMAB
     Route: 065
     Dates: start: 20190627
  2. XOLAIR [Suspect]
     Active Substance: OMALIZUMAB
     Indication: URTICARIA
     Route: 065
     Dates: start: 20190322

REACTIONS (10)
  - Influenza [Unknown]
  - Muscle strain [Recovered/Resolved]
  - Urticaria [Not Recovered/Not Resolved]
  - Malaise [Unknown]
  - Migraine [Unknown]
  - Asthenia [Unknown]
  - Hypersensitivity [Unknown]
  - Platelet count decreased [Unknown]
  - HIV infection [Unknown]
  - Product prescribing error [Unknown]

NARRATIVE: CASE EVENT DATE: 20190322
